FAERS Safety Report 13665579 (Version 2)
Quarter: 2017Q3

REPORT INFORMATION
  Report Type: Spontaneous
  Country: US (occurrence: US)
  Receive Date: 20170619
  Receipt Date: 20170802
  Transmission Date: 20171127
  Serious: No
  Sender: FDA-Public Use
  Company Number: US-ASTRAZENECA-2017SE62545

PATIENT
  Age: 61 Year
  Sex: Male
  Weight: 106.6 kg

DRUGS (2)
  1. BYDUREON [Suspect]
     Active Substance: EXENATIDE
     Indication: TYPE 2 DIABETES MELLITUS
     Route: 058
     Dates: start: 201704
  2. BYDUREON [Suspect]
     Active Substance: EXENATIDE
     Indication: TYPE 2 DIABETES MELLITUS
     Route: 058
     Dates: start: 2014, end: 20161231

REACTIONS (7)
  - Glycosylated haemoglobin increased [Unknown]
  - Device malfunction [Unknown]
  - Injection site haemorrhage [Unknown]
  - Drug dose omission [Recovered/Resolved]
  - Weight increased [Unknown]
  - Memory impairment [Unknown]
  - Needle issue [Unknown]

NARRATIVE: CASE EVENT DATE: 2014
